FAERS Safety Report 8116534-2 (Version None)
Quarter: 2012Q1

REPORT INFORMATION
  Report Type: 
  Country: None (occurrence: None)
  Receive Date: 20120131
  Receipt Date: 20120123
  Transmission Date: 20120608
  Serious: Yes (Hospitalization)
  Sender: FDA-Public Use
  Company Number: 2012S1000032

PATIENT
  Age: 93 Year
  Sex: Male

DRUGS (6)
  1. SELBEX [Concomitant]
  2. ADALAT [Concomitant]
  3. LIVALO [Suspect]
     Indication: HYPERLIPIDAEMIA
     Dosage: 2 MG;1X;PO
     Route: 048
     Dates: start: 20111215, end: 20111226
  4. TICLOPIDINE HCL [Concomitant]
  5. ISOSORBIDE MONONITRATE [Concomitant]
  6. CANDESARTAN CILEXETIL [Concomitant]

REACTIONS (2)
  - ABASIA [None]
  - MYOPATHY [None]
